FAERS Safety Report 24000345 (Version 1)
Quarter: 2024Q2

REPORT INFORMATION
  Report Type: Spontaneous
  Country: US (occurrence: US)
  Receive Date: 20240621
  Receipt Date: 20240621
  Transmission Date: 20240716
  Serious: No
  Sender: FDA-Public Use
  Company Number: US-Baxter Healthcare-2158379

PATIENT

DRUGS (1)
  1. RECOTHROM [Suspect]
     Active Substance: THROMBIN ALFA

REACTIONS (1)
  - No adverse event [Unknown]
